FAERS Safety Report 24739793 (Version 3)
Quarter: 2025Q1

REPORT INFORMATION
  Report Type: Spontaneous
  Country: US (occurrence: US)
  Receive Date: 20241216
  Receipt Date: 20250222
  Transmission Date: 20250408
  Serious: Yes (Death, Hospitalization, Other)
  Sender: SANOFI AVENTIS
  Company Number: US-SA-2024SA368209

PATIENT
  Age: 60 Year
  Sex: Male

DRUGS (7)
  1. REZUROCK [Suspect]
     Active Substance: BELUMOSUDIL
     Indication: Chronic graft versus host disease
     Dosage: 200 MG, QD
     Route: 048
     Dates: end: 202412
  2. PREDNISONE [Concomitant]
     Active Substance: PREDNISONE
  3. GLIPIZIDE [Concomitant]
     Active Substance: GLIPIZIDE
  4. BACTRIM [Concomitant]
     Active Substance: SULFAMETHOXAZOLE\TRIMETHOPRIM
  5. PEPCID [Concomitant]
     Active Substance: FAMOTIDINE
  6. NOXAFIL [Concomitant]
     Active Substance: POSACONAZOLE
  7. ACYCLOVIR [Concomitant]
     Active Substance: ACYCLOVIR

REACTIONS (2)
  - Death [Fatal]
  - Influenza [Recovering/Resolving]

NARRATIVE: CASE EVENT DATE: 20250201
